FAERS Safety Report 7997726 (Version 2)
Quarter: 2014Q3

REPORT INFORMATION
  Report Type: Spontaneous
  Country: US (occurrence: US)
  Receive Date: 20110620
  Receipt Date: 20140711
  Transmission Date: 20150326
  Serious: Yes (Hospitalization, Other)
  Sender: FDA-Public Use
  Company Number: US-ROCHE-727240

PATIENT
  Age: 16 Year
  Sex: Female
  Weight: 70.3 kg

DRUGS (11)
  1. ACCUTANE [Suspect]
     Active Substance: ISOTRETINOIN
     Route: 065
  2. ACCUTANE [Suspect]
     Active Substance: ISOTRETINOIN
     Route: 065
  3. ACCUTANE [Suspect]
     Active Substance: ISOTRETINOIN
     Indication: ACNE
     Route: 065
     Dates: start: 200408, end: 200601
  4. ACCUTANE [Suspect]
     Active Substance: ISOTRETINOIN
     Route: 065
  5. ACCUTANE [Suspect]
     Active Substance: ISOTRETINOIN
     Route: 065
  6. ACCUTANE [Suspect]
     Active Substance: ISOTRETINOIN
     Route: 065
  7. ACCUTANE [Suspect]
     Active Substance: ISOTRETINOIN
     Route: 065
  8. ACCUTANE [Suspect]
     Active Substance: ISOTRETINOIN
     Dosage: FOR TWO MONTHS
     Route: 065
  9. ACCUTANE [Suspect]
     Active Substance: ISOTRETINOIN
     Route: 065
  10. ACCUTANE [Suspect]
     Active Substance: ISOTRETINOIN
     Route: 065
  11. ACCUTANE [Suspect]
     Active Substance: ISOTRETINOIN
     Route: 065

REACTIONS (17)
  - Oral herpes [Unknown]
  - Fatigue [Unknown]
  - Gastrointestinal injury [Unknown]
  - Blood triglycerides increased [Unknown]
  - Goitre [Unknown]
  - Aspartate aminotransferase increased [Unknown]
  - Inflammatory bowel disease [Unknown]
  - Depression [Unknown]
  - Rectal polyp [Unknown]
  - Haemorrhoids [Unknown]
  - Tonsillitis [Unknown]
  - Skin papilloma [Unknown]
  - Blood cholesterol increased [Unknown]
  - Colitis ulcerative [Unknown]
  - Rectal fissure [Unknown]
  - Alanine aminotransferase increased [Unknown]
  - Crohn^s disease [Unknown]

NARRATIVE: CASE EVENT DATE: 20041220
